FAERS Safety Report 13451725 (Version 3)
Quarter: 2019Q1

REPORT INFORMATION
  Report Type: Spontaneous
  Country: US (occurrence: US)
  Receive Date: 20170418
  Receipt Date: 20190214
  Transmission Date: 20190417
  Serious: No
  Sender: FDA-Public Use
  Company Number: US-PFIZER INC-2017162493

PATIENT
  Age: 69 Year
  Sex: Female

DRUGS (4)
  1. MELOXICAM. [Suspect]
     Active Substance: MELOXICAM
     Dosage: UNK
  2. OXYCODONE AND ACETAMINOPHEN [Suspect]
     Active Substance: ACETAMINOPHEN\OXYCODONE HYDROCHLORIDE
     Dosage: UNK
  3. ASPIRIN. [Suspect]
     Active Substance: ASPIRIN
     Dosage: UNK
  4. IBUPROFEN. [Suspect]
     Active Substance: IBUPROFEN
     Dosage: UNK

REACTIONS (2)
  - Nausea [Unknown]
  - Drug hypersensitivity [Unknown]
